FAERS Safety Report 12716101 (Version 1)
Quarter: 2016Q3

REPORT INFORMATION
  Report Type: Spontaneous
  Country: US (occurrence: US)
  Receive Date: 20160906
  Receipt Date: 20160906
  Transmission Date: 20161109
  Serious: Yes (Other)
  Sender: FDA-Public Use
  Company Number: US-ROCHE-1825252

PATIENT
  Age: 57 Year
  Sex: Female

DRUGS (2)
  1. KEFLEX [Suspect]
     Active Substance: CEPHALEXIN
     Indication: SINUSITIS
     Route: 065
  2. XOLAIR [Suspect]
     Active Substance: OMALIZUMAB
     Indication: PRODUCT USED FOR UNKNOWN INDICATION
     Route: 058

REACTIONS (3)
  - Haemorrhage [Unknown]
  - Drug hypersensitivity [Unknown]
  - Rash [Unknown]
